FAERS Safety Report 4344330-0 (Version None)
Quarter: 2004Q2

REPORT INFORMATION
  Report Type: 
  Country: None (occurrence: None)
  Receive Date: 20040419
  Receipt Date: 20040408
  Transmission Date: 20050107
  Serious: Yes (Life-Threatening)
  Sender: FDA-Public Use
  Company Number: 2003175597FR

PATIENT
  Age: 1 Day
  Sex: Female
  Weight: 3.5 kg

DRUGS (4)
  1. XANAX [Suspect]
     Dosage: 0,25 MG/DAY, INTRA-UTERINE
     Route: 015
  2. CHLORPROMAZINE [Suspect]
     Dosage: INTRA-UTERINE
     Route: 015
  3. EFFEXOR [Suspect]
     Dosage: 25 MG/DAY, INTRA-UTERINE
     Route: 015
  4. MIRTAZAPINE [Concomitant]

REACTIONS (6)
  - CARDIO-RESPIRATORY ARREST NEONATAL [None]
  - DRUG EXPOSURE DURING PREGNANCY [None]
  - FOETAL ARRHYTHMIA [None]
  - FORCEPS DELIVERY [None]
  - REGURGITATION OF FOOD [None]
  - SOMNOLENCE NEONATAL [None]
